FAERS Safety Report 9200210 (Version 2)
Quarter: 2013Q2

REPORT INFORMATION
  Report Type: Spontaneous
  Country: US (occurrence: US)
  Receive Date: 20130329
  Receipt Date: 20130424
  Transmission Date: 20140414
  Serious: Yes (Hospitalization)
  Sender: FDA-Public Use
  Company Number: US-B.I. PHARMACEUTICALS,INC./RIDGEFIELD-2013-BI-07771BP

PATIENT
  Age: 84 Year
  Sex: Female

DRUGS (9)
  1. TRADJENTA [Suspect]
     Indication: TYPE 2 DIABETES MELLITUS
     Dosage: 5 MG
     Route: 048
     Dates: start: 20130212, end: 20130213
  2. METOPROLOL [Concomitant]
     Dosage: 50 MG
  3. PRAVASTATIN [Concomitant]
     Indication: HYPERLIPIDAEMIA
     Dosage: 20 MG
  4. RISPERIDONE [Concomitant]
     Indication: AGITATION
     Dosage: 0.5 MG
  5. MELOXICAM [Concomitant]
     Dosage: 15 MG
  6. SYNTHROID [Concomitant]
     Indication: HYPOTHYROIDISM
     Dosage: 50 MG
  7. LOSARTAN [Concomitant]
     Indication: HYPERTENSION
     Dosage: 50 MG
  8. METFORMIN [Concomitant]
     Indication: DIABETES MELLITUS
     Dosage: 500 MG
     Dates: end: 20130211
  9. TOPROL [Concomitant]
     Indication: HYPERTENSION

REACTIONS (1)
  - Rash [Recovered/Resolved]
